FAERS Safety Report 6533672-6 (Version None)
Quarter: 2010Q1

REPORT INFORMATION
  Report Type: 
  Country: None (occurrence: None)
  Receive Date: 20100108
  Receipt Date: 20100108
  Transmission Date: 20100710
  Serious: Yes (Other)
  Sender: FDA-Public Use
  Company Number: None

PATIENT
  Age: 34 Year
  Sex: Female
  Weight: 62.1428 kg

DRUGS (2)
  1. SOLU-MEDROL [Suspect]
     Indication: SINUSITIS
     Dosage: 125MG/2ML ONCE IM, ONE DOSE
     Route: 030
  2. IBUPROFEN [Concomitant]

REACTIONS (2)
  - INJECTION SITE PAIN [None]
  - NEURITIS [None]
